FAERS Safety Report 10360678 (Version 1)
Quarter: 2014Q3

REPORT INFORMATION
  Report Type: Spontaneous
  Country: US (occurrence: None)
  Receive Date: 20140731
  Receipt Date: 20140731
  Transmission Date: 20150326
  Serious: Yes (Death)
  Sender: FDA-Public Use
  Company Number: HYP201407-000048

PATIENT
  Age: 61 Year
  Sex: Female

DRUGS (9)
  1. RAVICTI [Suspect]
     Active Substance: GLYCEROL PHENYLBUTYRATE
     Indication: AMINO ACID METABOLISM DISORDER
     Dates: start: 201406, end: 201407
  2. LACTULOSE (LACTULOSE) [Concomitant]
     Active Substance: LACTULOSE
  3. ONDANSETRON. [Concomitant]
     Active Substance: ONDANSETRON
  4. OXYCODONE (OXYCODONE) [Concomitant]
     Active Substance: OXYCODONE
  5. FOLFOX (CALCIUM FOLINATE, FLUOROURACIL, OXALIPLATIN) [Concomitant]
  6. PROCHLORPERAZINE (PROCHLORPERAZINE) [Concomitant]
     Active Substance: PROCHLORPERAZINE
  7. DOCUSATE SODIUM (DOCUSATE SODIUM) [Concomitant]
     Active Substance: DOCUSATE SODIUM
  8. NEOMYCIN (NEOMYCIN) [Concomitant]
     Active Substance: NEOMYCIN
  9. OMEPRAZOLE (OMEPRAZOLE) [Concomitant]
     Active Substance: OMEPRAZOLE

REACTIONS (2)
  - Colon cancer metastatic [None]
  - Malignant neoplasm progression [None]

NARRATIVE: CASE EVENT DATE: 20140715
